FAERS Safety Report 5892707-4 (Version None)
Quarter: 2008Q3

REPORT INFORMATION
  Report Type: 
  Country: None (occurrence: None)
  Receive Date: 20080923
  Receipt Date: 20080917
  Transmission Date: 20090109
  Serious: Yes (Other)
  Sender: FDA-Public Use
  Company Number: PHBS2008IT05743

PATIENT
  Age: 48 Year
  Sex: Male

DRUGS (2)
  1. CARBAMAZEPINE [Suspect]
     Indication: PETIT MAL EPILEPSY
     Dosage: 200 MG/DAY
     Route: 065
  2. PHENOBARBITAL TAB [Suspect]
     Indication: PETIT MAL EPILEPSY
     Dosage: 200 MG/DAY
     Route: 065

REACTIONS (3)
  - COUGH [None]
  - DYSPNOEA EXERTIONAL [None]
  - INTERSTITIAL LUNG DISEASE [None]
